APPROVED DRUG PRODUCT: LIDOPEN
Active Ingredient: LIDOCAINE HYDROCHLORIDE
Strength: 10%
Dosage Form/Route: INJECTABLE;INJECTION
Application: N017549 | Product #001
Applicant: MERIDIAN MEDICAL TECHNOLOGIES INC
Approved: Approved Prior to Jan 1, 1982 | RLD: No | RS: No | Type: DISCN